FAERS Safety Report 14119157 (Version 1)
Quarter: 2017Q4

REPORT INFORMATION
  Report Type: Spontaneous
  Country: US (occurrence: None)
  Receive Date: 20171023
  Receipt Date: 20171023
  Transmission Date: 20180321
  Serious: No
  Sender: FDA-Public Use
  Company Number: None

PATIENT
  Sex: Female

DRUGS (1)
  1. PROLIA [Suspect]
     Active Substance: DENOSUMAB
     Indication: OSTEOPOROSIS
     Dosage: 60MG Q 6 MONTHS SUB-Q
     Route: 058
     Dates: start: 201705

REACTIONS (3)
  - Pain in extremity [None]
  - Groin pain [None]
  - Arthralgia [None]
